FAERS Safety Report 9356787 (Version 1)
Quarter: 2013Q2

REPORT INFORMATION
  Report Type: Report from Study
  Country: DE (occurrence: DE)
  Receive Date: 20130619
  Receipt Date: 20130619
  Transmission Date: 20140414
  Serious: No
  Sender: FDA-Public Use
  Company Number: PHHY2013DE059956

PATIENT
  Sex: Female

DRUGS (3)
  1. AMN107 [Suspect]
     Indication: CHRONIC MYELOID LEUKAEMIA
     Dosage: 600 MG, QD
     Route: 048
     Dates: start: 20111229, end: 20120326
  2. AMN107 [Suspect]
     Dosage: 600 MG, QD
     Route: 048
     Dates: start: 20120413, end: 20120613
  3. LEVOTHYROXIN [Concomitant]
     Dosage: 75 UG, UNK
     Dates: start: 20000101

REACTIONS (1)
  - Drug ineffective [Not Recovered/Not Resolved]
